FAERS Safety Report 10441783 (Version 1)
Quarter: 2014Q3

REPORT INFORMATION
  Report Type: Report from Study
  Country: US (occurrence: US)
  Receive Date: 20140909
  Receipt Date: 20140909
  Transmission Date: 20150326
  Serious: No
  Sender: FDA-Public Use
  Company Number: US-009507513-1409USA003440

PATIENT
  Age: 26 Year
  Sex: Female
  Weight: 113.83 kg

DRUGS (3)
  1. IMPLANON [Suspect]
     Active Substance: ETONOGESTREL
     Indication: CONTRACEPTION
     Dosage: UNK
     Route: 059
     Dates: start: 2011
  2. IMPLANON [Suspect]
     Active Substance: ETONOGESTREL
     Dosage: UNK
     Route: 059
     Dates: start: 20140512
  3. LUPRON [Suspect]
     Active Substance: LEUPROLIDE ACETATE
     Indication: ENDOMETRIOSIS
     Dosage: 3.75 MG, QM
     Dates: start: 201401

REACTIONS (5)
  - Crying [Unknown]
  - Night sweats [Unknown]
  - Depressed mood [Unknown]
  - Hot flush [Unknown]
  - Depression [Unknown]

NARRATIVE: CASE EVENT DATE: 201403
